FAERS Safety Report 6812019-1 (Version None)
Quarter: 2010Q3

REPORT INFORMATION
  Report Type: 
  Country: None (occurrence: None)
  Receive Date: 20100701
  Receipt Date: 20100625
  Transmission Date: 20110219
  Serious: Yes (Hospitalization)
  Sender: FDA-Public Use
  Company Number: FR-ROXANE LABORATORIES, INC.-2010-RO-00763RO

PATIENT
  Age: 81 Year
  Sex: Female

DRUGS (5)
  1. FUROSEMIDE [Suspect]
  2. ACEBUTOLOL [Suspect]
  3. OMEPRAZOLE [Suspect]
  4. LYSINE ASPIRIN [Suspect]
  5. PHENOBARBITAL [Suspect]

REACTIONS (2)
  - GRAND MAL CONVULSION [None]
  - SKIN ULCER [None]
